FAERS Safety Report 7593129-0 (Version None)
Quarter: 2011Q3

REPORT INFORMATION
  Report Type: 
  Country: None (occurrence: None)
  Receive Date: 20110706
  Receipt Date: 20110623
  Transmission Date: 20111222
  Serious: Yes (Hospitalization)
  Sender: FDA-Public Use
  Company Number: US-JNJFOC-20110203393

PATIENT
  Sex: Female
  Weight: 36 kg

DRUGS (8)
  1. MESALAMINE [Concomitant]
     Route: 048
  2. MULTIPLE VITAMINS [Concomitant]
  3. REMICADE [Suspect]
     Indication: INFLAMMATORY BOWEL DISEASE
     Route: 042
     Dates: start: 20100722
  4. FERROUS SULFATE TAB [Concomitant]
  5. REMICADE [Suspect]
     Route: 042
     Dates: start: 20101214
  6. PREVACID [Concomitant]
  7. MESALAMINE [Concomitant]
     Route: 054
  8. PREDNISONE [Concomitant]

REACTIONS (1)
  - COLITIS [None]
